FAERS Safety Report 6668168-4 (Version None)
Quarter: 2010Q2

REPORT INFORMATION
  Report Type: 
  Country: None (occurrence: None)
  Receive Date: 20100406
  Receipt Date: 20100324
  Transmission Date: 20101027
  Serious: Yes (Hospitalization)
  Sender: FDA-Public Use
  Company Number: PL-RANBAXY-2010RR-32842

PATIENT
  Age: 52 Year
  Sex: Female

DRUGS (2)
  1. AMLODIPINE [Suspect]
  2. SPIRONOLACTONE [Suspect]

REACTIONS (1)
  - ACUTE GENERALISED EXANTHEMATOUS PUSTULOSIS [None]
